FAERS Safety Report 5655999-2 (Version None)
Quarter: 2008Q1

REPORT INFORMATION
  Report Type: 
  Country: None (occurrence: None)
  Receive Date: 20080307
  Receipt Date: 20080226
  Transmission Date: 20080703
  Serious: Yes (Other)
  Sender: FDA-Public Use
  Company Number: GB-PFIZER INC-2008018517

PATIENT
  Age: 81 Year
  Sex: Female

DRUGS (2)
  1. SUTENT [Suspect]
     Route: 048
  2. ANTIBIOTICS [Suspect]
     Indication: PYREXIA
     Route: 042

REACTIONS (3)
  - DISSEMINATED INTRAVASCULAR COAGULATION [None]
  - PLATELET COUNT DECREASED [None]
  - PYREXIA [None]
